FAERS Safety Report 24423900 (Version 1)
Quarter: 2024Q4

REPORT INFORMATION
  Report Type: Spontaneous
  Country: US (occurrence: US)
  Receive Date: 20241010
  Receipt Date: 20241010
  Transmission Date: 20250115
  Serious: No
  Sender: SANOFI AVENTIS
  Company Number: US-SA-2024SA292305

PATIENT
  Age: 63 Year
  Sex: Female
  Weight: 65.31 kg

DRUGS (1)
  1. DUPIXENT [Suspect]
     Active Substance: DUPILUMAB
     Dosage: 300MG EVERY 14 DAYS
     Route: 058

REACTIONS (1)
  - Inappropriate schedule of product administration [Unknown]
